FAERS Safety Report 12192232 (Version 1)
Quarter: 2016Q1

REPORT INFORMATION
  Report Type: Spontaneous
  Country: US (occurrence: US)
  Receive Date: 20160318
  Receipt Date: 20160318
  Transmission Date: 20160526
  Serious: Yes (Other)
  Sender: FDA-Public Use
  Company Number: US-SA-2016SA052910

PATIENT
  Age: 62 Year
  Sex: Male

DRUGS (3)
  1. SOMATROPIN [Suspect]
     Active Substance: SOMATROPIN
     Route: 065
     Dates: start: 200101
  2. APIDRA [Suspect]
     Active Substance: INSULIN GLULISINE
     Route: 065
  3. HUMULIN N [Suspect]
     Active Substance: INSULIN HUMAN
     Indication: DIABETES MELLITUS
     Dosage: DOSE:40 UNIT(S)
     Route: 065
     Dates: end: 2004

REACTIONS (9)
  - Sensitivity of teeth [Not Recovered/Not Resolved]
  - Tooth infection [Not Recovered/Not Resolved]
  - Drug prescribing error [Unknown]
  - Glaucoma [Unknown]
  - Blindness unilateral [Unknown]
  - Cataract [Recovered/Resolved]
  - Blood glucose decreased [Unknown]
  - Diabetic retinopathy [Unknown]
  - Fall [Unknown]

NARRATIVE: CASE EVENT DATE: 1979
